FAERS Safety Report 9409838 (Version 3)
Quarter: 2014Q1

REPORT INFORMATION
  Report Type: Spontaneous
  Country: US (occurrence: None)
  Receive Date: 20130506
  Receipt Date: 20140210
  Transmission Date: 20141002
  Serious: Yes (Hospitalization, Other)
  Sender: FDA-Public Use
  Company Number: ADR-2010-9327

PATIENT
  Sex: Male

DRUGS (3)
  1. LIORESAL [Suspect]
     Indication: MUSCLE RELAXANT THERAPY
     Route: 037
  2. BENZOS [Concomitant]
  3. ORAL BACLOFEN [Concomitant]

REACTIONS (16)
  - Underdose [None]
  - Drug withdrawal syndrome [None]
  - Muscle spasms [None]
  - Hyperhidrosis [None]
  - Device dislocation [None]
  - Drug ineffective [None]
  - Overdose [None]
  - Hiccups [None]
  - Muscle spasms [None]
  - Hyperhidrosis [None]
  - Pyrexia [None]
  - Bladder spasm [None]
  - Therapeutic response decreased [None]
  - Drug effect prolonged [None]
  - Device breakage [None]
  - Device occlusion [None]
